FAERS Safety Report 4301053-1 (Version None)
Quarter: 2004Q1

REPORT INFORMATION
  Report Type: 
  Country: None (occurrence: None)
  Receive Date: 20040219
  Receipt Date: 20040212
  Transmission Date: 20041129
  Serious: No
  Sender: FDA-Public Use
  Company Number: 2004UW02496

PATIENT
  Age: 25 Year
  Weight: 75.7507 kg

DRUGS (12)
  1. SEROQUEL [Suspect]
     Indication: BIPOLAR DISORDER
     Dosage: 500M MG DAILY PO
     Route: 048
  2. SEROQUEL [Suspect]
     Indication: PSYCHOTIC DISORDER
     Dosage: 500M MG DAILY PO
     Route: 048
  3. SEROQUEL [Suspect]
     Indication: BIPOLAR DISORDER
     Dosage: 700 MG DAILY PO
     Route: 048
  4. SEROQUEL [Suspect]
     Indication: PSYCHOTIC DISORDER
     Dosage: 700 MG DAILY PO
     Route: 048
  5. TEGRETOL [Suspect]
     Indication: BIPOLAR DISORDER
     Dosage: 800 MG DAILY
  6. TEGRETOL [Suspect]
     Indication: CONVULSION
     Dosage: 800 MG DAILY
  7. LITHIUM CITRATE [Concomitant]
  8. CHLORPROMAZINE [Concomitant]
  9. LEVOTHYROXINE SODIUM [Concomitant]
  10. MULTI-VITAMIN [Concomitant]
  11. PYRIDOXINE [Concomitant]
  12. VITAMIN E [Concomitant]

REACTIONS (2)
  - DRUG INTERACTION [None]
  - DRUG LEVEL INCREASED [None]
